FAERS Safety Report 8018328-5 (Version None)
Quarter: 2012Q1

REPORT INFORMATION
  Report Type: 
  Country: None (occurrence: None)
  Receive Date: 20120103
  Receipt Date: 20111223
  Transmission Date: 20120608
  Serious: Yes (Hospitalization)
  Sender: FDA-Public Use
  Company Number: US-BAYER-2011-055974

PATIENT
  Age: 33 Year
  Sex: Female
  Weight: 76.19 kg

DRUGS (4)
  1. ACETAMINOPHEN [Concomitant]
  2. ALBUTEROL [Concomitant]
  3. XOPENEX [Concomitant]
     Indication: ASTHMA
  4. DROSPIRENONE AND ETHINYL ESTRADIOL [Suspect]
     Indication: DYSMENORRHOEA
     Dosage: UNK
     Route: 048
     Dates: start: 20081201, end: 20090601

REACTIONS (3)
  - PULMONARY EMBOLISM [None]
  - PAIN [None]
  - INJURY [None]
